FAERS Safety Report 19657044 (Version 1)
Quarter: 2021Q3

REPORT INFORMATION
  Report Type: Report from Study
  Country: US (occurrence: US)
  Receive Date: 20210804
  Receipt Date: 20210804
  Transmission Date: 20211014
  Serious: Yes (Hospitalization, Other)
  Sender: FDA-Public Use
  Company Number: US-TAKEDA-2021TUS044805

PATIENT
  Age: 58 Year
  Sex: Female

DRUGS (12)
  1. TEDUGLUTIDE [Suspect]
     Active Substance: TEDUGLUTIDE
     Dosage: 0.417 MILLILITER, QD
     Route: 050
     Dates: start: 20210706
  2. TEDUGLUTIDE [Suspect]
     Active Substance: TEDUGLUTIDE
     Indication: SHORT-BOWEL SYNDROME
     Dosage: 0.417 MILLILITER, QD
     Route: 050
     Dates: start: 20210704
  3. TEDUGLUTIDE [Suspect]
     Active Substance: TEDUGLUTIDE
     Indication: SHORT-BOWEL SYNDROME
     Dosage: 0.417 MILLILITER, QD
     Route: 050
     Dates: start: 20210704
  4. TEDUGLUTIDE [Suspect]
     Active Substance: TEDUGLUTIDE
     Dosage: 0.417 MILLILITER, QD
     Route: 050
     Dates: start: 20210706
  5. TEDUGLUTIDE [Suspect]
     Active Substance: TEDUGLUTIDE
     Dosage: 4.2 MILLIGRAM, QOD
     Route: 058
     Dates: start: 20210507, end: 20210726
  6. TEDUGLUTIDE [Suspect]
     Active Substance: TEDUGLUTIDE
     Indication: SHORT-BOWEL SYNDROME
     Dosage: 0.417 MILLILITER, QD
     Route: 050
     Dates: start: 20210704
  7. TEDUGLUTIDE [Suspect]
     Active Substance: TEDUGLUTIDE
     Dosage: 0.417 MILLILITER, QD
     Route: 050
     Dates: start: 20210706
  8. TEDUGLUTIDE [Suspect]
     Active Substance: TEDUGLUTIDE
     Dosage: 4.2 MILLIGRAM, QOD
     Route: 058
     Dates: start: 20210507, end: 20210726
  9. TEDUGLUTIDE [Suspect]
     Active Substance: TEDUGLUTIDE
     Indication: SHORT-BOWEL SYNDROME
     Dosage: 0.417 MILLILITER, QD
     Route: 050
     Dates: start: 20210704
  10. TEDUGLUTIDE [Suspect]
     Active Substance: TEDUGLUTIDE
     Dosage: 0.417 MILLILITER, QD
     Route: 050
     Dates: start: 20210706
  11. TEDUGLUTIDE [Suspect]
     Active Substance: TEDUGLUTIDE
     Dosage: 4.2 MILLIGRAM, QOD
     Route: 058
     Dates: start: 20210507, end: 20210726
  12. TEDUGLUTIDE [Suspect]
     Active Substance: TEDUGLUTIDE
     Dosage: 4.2 MILLIGRAM, QOD
     Route: 058
     Dates: start: 20210507, end: 20210726

REACTIONS (10)
  - Intestinal obstruction [Unknown]
  - Pancreatic disorder [Unknown]
  - Dyspnoea [Unknown]
  - Pyrexia [Unknown]
  - Back pain [Unknown]
  - Fluid retention [Recovering/Resolving]
  - Pollakiuria [Unknown]
  - Pain [Unknown]
  - Sepsis [Unknown]
  - Product use issue [Recovered/Resolved]

NARRATIVE: CASE EVENT DATE: 20210712
